FAERS Safety Report 19215927 (Version 2)
Quarter: 2021Q3

REPORT INFORMATION
  Report Type: Report from Study
  Country: None (occurrence: FR)
  Receive Date: 20210505
  Receipt Date: 20210917
  Transmission Date: 20211014
  Serious: Yes (Hospitalization, Other)
  Sender: FDA-Public Use
  Company Number: FR-ABBVIE-21K-056-3887723-00

PATIENT
  Age: 51 Year
  Sex: Male

DRUGS (13)
  1. HUMIRA [Suspect]
     Active Substance: ADALIMUMAB
     Indication: COLITIS ULCERATIVE
     Route: 058
     Dates: start: 20151001, end: 20151231
  2. AZATHIOPRINE. [Suspect]
     Active Substance: AZATHIOPRINE
     Indication: COLITIS ULCERATIVE
     Route: 048
     Dates: start: 199802, end: 201904
  3. NERISONE [Concomitant]
     Active Substance: DIFLUCORTOLONE VALERATE
     Dosage: AS REQUIRED
     Route: 003
     Dates: start: 20170329
  4. VEDOLIZUMAB [Concomitant]
     Active Substance: VEDOLIZUMAB
     Indication: COLITIS ULCERATIVE
     Route: 040
     Dates: start: 20201214
  5. TARDYFERON [Concomitant]
     Active Substance: FERROUS SULFATE
     Indication: COLITIS ULCERATIVE
     Route: 048
     Dates: start: 20201123
  6. NERISONE [Concomitant]
     Active Substance: DIFLUCORTOLONE VALERATE
     Route: 003
     Dates: start: 201610, end: 20161005
  7. DIPROSONE [Concomitant]
     Active Substance: BETAMETHASONE DIPROPIONATE
     Indication: SKIN LESION
     Dosage: AS REQUIRED
     Route: 003
     Dates: start: 20161006
  8. ZOPICLONE [Concomitant]
     Active Substance: ZOPICLONE
     Indication: COLITIS ULCERATIVE
     Route: 048
     Dates: start: 202012
  9. UVEDOSE [Concomitant]
     Active Substance: CHOLECALCIFEROL
     Indication: PROPHYLAXIS
     Route: 048
     Dates: start: 20200908
  10. PENTASA [Concomitant]
     Active Substance: MESALAMINE
     Indication: COLITIS ULCERATIVE
     Route: 048
     Dates: start: 20210215
  11. HUMIRA [Suspect]
     Active Substance: ADALIMUMAB
     Route: 058
     Dates: start: 20160115, end: 201904
  12. NERISONE [Concomitant]
     Active Substance: DIFLUCORTOLONE VALERATE
     Indication: SKIN LESION
     Route: 003
     Dates: start: 20160219, end: 20160304
  13. NERISONE [Concomitant]
     Active Substance: DIFLUCORTOLONE VALERATE
     Route: 003
     Dates: start: 20160923, end: 20161002

REACTIONS (1)
  - Goitre [Recovered/Resolved]

NARRATIVE: CASE EVENT DATE: 20210423
